FAERS Safety Report 7355846-7 (Version None)
Quarter: 2011Q1

REPORT INFORMATION
  Report Type: 
  Country: None (occurrence: None)
  Receive Date: 20110316
  Receipt Date: 20110309
  Transmission Date: 20110831
  Serious: Yes (Other)
  Sender: FDA-Public Use
  Company Number: FR-BRISTOL-MYERS SQUIBB COMPANY-15406713

PATIENT
  Age: 80 Year
  Sex: Female
  Weight: 80 kg

DRUGS (7)
  1. DIAMICRON [Suspect]
     Indication: TYPE 2 DIABETES MELLITUS
     Dosage: DIAMICRON 30 SR
     Route: 048
  2. INEGY [Concomitant]
     Indication: HYPERCHOLESTEROLAEMIA
     Dosage: 1 DF= 1 TABLET,INEGY 10/20 MG
     Route: 048
  3. CARDENSIEL [Concomitant]
     Indication: CARDIAC FAILURE
  4. ONGLYZA [Suspect]
     Indication: TYPE 2 DIABETES MELLITUS
     Route: 048
     Dates: start: 20101013, end: 20101016
  5. ATACAND [Concomitant]
     Indication: HYPERTENSION
     Dosage: 1 DF= 1 TAB,ATACAN 8MG.
     Route: 048
  6. AMLOR [Concomitant]
     Indication: HYPERTENSION
     Dosage: 1 DF= 1 TAB,AMLOR 5 MG.
     Route: 048
  7. PLAVIX [Concomitant]
     Indication: CORONARY ARTERY DISEASE
     Dosage: 1 DF= 1TAB,PLAVIX 75 MG.
     Route: 048

REACTIONS (3)
  - VERTIGO [None]
  - HYPERHIDROSIS [None]
  - ASTHENIA [None]
